FAERS Safety Report 4343074-9 (Version None)
Quarter: 2004Q2

REPORT INFORMATION
  Report Type: 
  Country: None (occurrence: None)
  Receive Date: 20040421
  Receipt Date: 20040412
  Transmission Date: 20050107
  Serious: Yes (Hospitalization)
  Sender: FDA-Public Use
  Company Number: US-BRISTOL-MYERS SQUIBB COMPANY-12558664

PATIENT
  Age: 8 Year
  Sex: Male

DRUGS (5)
  1. ABILIFY [Suspect]
     Indication: BIPOLAR DISORDER
     Route: 048
     Dates: start: 20031231, end: 20040123
  2. ZYPREXA [Concomitant]
  3. ZOLOFT [Concomitant]
  4. CLONIDINE [Concomitant]
  5. DDAVP [Concomitant]

REACTIONS (5)
  - BLOOD GLUCOSE INCREASED [None]
  - DIABETES MELLITUS INSULIN-DEPENDENT [None]
  - DRUG INEFFECTIVE [None]
  - NAUSEA [None]
  - URINE KETONE BODY PRESENT [None]
